FAERS Safety Report 13953885 (Version 1)
Quarter: 2017Q3

REPORT INFORMATION
  Report Type: Spontaneous
  Country: US (occurrence: US)
  Receive Date: 20170908
  Receipt Date: 20170908
  Transmission Date: 20171128
  Serious: Yes (Life-Threatening, Hospitalization, Other)
  Sender: FDA-Public Use
  Company Number: None

PATIENT
  Age: 77 Year
  Sex: Male
  Weight: 87.3 kg

DRUGS (17)
  1. ATORVASTATIN [Concomitant]
     Active Substance: ATORVASTATIN
  2. METHOCARBAMOL. [Concomitant]
     Active Substance: METHOCARBAMOL
  3. ENALAPRIL [Concomitant]
     Active Substance: ENALAPRIL
  4. NORCO [Concomitant]
     Active Substance: ACETAMINOPHEN\HYDROCODONE BITARTRATE
  5. HYDROCORTISONE. [Concomitant]
     Active Substance: HYDROCORTISONE
  6. NITROGLYCERIN. [Concomitant]
     Active Substance: NITROGLYCERIN
  7. TYLENOL WITH CODEINE [Concomitant]
     Active Substance: ACETAMINOPHEN\CODEINE PHOSPHATE
  8. ASPIRIN. [Concomitant]
     Active Substance: ASPIRIN
  9. DIGOXIN. [Suspect]
     Active Substance: DIGOXIN
     Indication: ATRIAL FIBRILLATION
     Route: 048
     Dates: start: 20170524, end: 20170717
  10. FENOFIBRATE. [Concomitant]
     Active Substance: FENOFIBRATE
  11. INSULIN GLARGINE [Concomitant]
     Active Substance: INSULIN GLARGINE
  12. CARVEDILOL. [Concomitant]
     Active Substance: CARVEDILOL
  13. INSULIN ASPART [Concomitant]
     Active Substance: INSULIN ASPART
  14. FLUTICASONE. [Concomitant]
     Active Substance: FLUTICASONE
  15. CLONAZEPAM. [Concomitant]
     Active Substance: CLONAZEPAM
  16. FUROSEMIDE. [Concomitant]
     Active Substance: FUROSEMIDE
  17. CLOPIDOGREL [Concomitant]
     Active Substance: CLOPIDOGREL BISULFATE

REACTIONS (5)
  - Dizziness [None]
  - Fatigue [None]
  - Cardioactive drug level increased [None]
  - Heart rate decreased [None]
  - Syncope [None]

NARRATIVE: CASE EVENT DATE: 20170717
